FAERS Safety Report 16529957 (Version 2)
Quarter: 2019Q3

REPORT INFORMATION
  Report Type: Spontaneous
  Country: IT (occurrence: IT)
  Receive Date: 20190704
  Receipt Date: 20190710
  Transmission Date: 20191004
  Serious: Yes (Hospitalization)
  Sender: FDA-Public Use
  Company Number: IT-CELGENEUS-ITA-20190600108

PATIENT
  Age: 69 Year
  Sex: Female
  Weight: 64 kg

DRUGS (1)
  1. AZACITIDINE. [Suspect]
     Active Substance: AZACITIDINE
     Indication: ACUTE MYELOID LEUKAEMIA
     Dosage: 3 CYCLES PERFORMED
     Route: 065
     Dates: end: 20190614

REACTIONS (3)
  - Pyrexia [Unknown]
  - Therapy non-responder [Unknown]
  - Blast cell count increased [Unknown]

NARRATIVE: CASE EVENT DATE: 2019
